FAERS Safety Report 8664134 (Version 4)
Quarter: 2012Q4

REPORT INFORMATION
  Report Type: 
  Country: US (occurrence: US)
  Receive Date: 20120713
  Receipt Date: 20121127
  Transmission Date: 20130627
  Serious: Yes (Hospitalization)
  Sender: FDA-Public Use
  Company Number: US-CELGENEUS-163-21880-12070659

PATIENT
  Sex: Male

DRUGS (9)
  1. REVLIMID [Suspect]
     Indication: MULTIPLE MYELOMA
     Dosage: 25 Milligram
     Route: 048
     Dates: start: 20110214, end: 201206
  2. REVLIMID [Suspect]
     Dosage: 25 Milligram
     Route: 048
     Dates: start: 20120709, end: 20120924
  3. AZITHROMYCIN [Suspect]
     Indication: DRUG USE FOR UNKNOWN INDICATION
     Route: 065
  4. COUMADIN [Concomitant]
     Indication: THROMBOSIS PROPHYLAXIS
     Dosage: 7 Milligram
     Route: 065
  5. RANITIDINE [Concomitant]
     Indication: DRUG USE FOR UNKNOWN INDICATION
     Dosage: 300 Milligram
     Route: 065
  6. VITAMIN D [Concomitant]
     Indication: DRUG USE FOR UNKNOWN INDICATION
     Dosage: 50000
     Route: 065
  7. METOPROLOL [Concomitant]
     Indication: BLOOD PRESSURE
     Dosage: 50
     Route: 065
  8. METOPROLOL [Concomitant]
     Indication: ARRHYTHMIA
  9. TAMSULOSIN [Concomitant]
     Indication: UNEVALUABLE EVENT
     Dosage: .4 Milligram
     Route: 065

REACTIONS (2)
  - Adverse drug reaction [Recovered/Resolved]
  - Neuropathy peripheral [Not Recovered/Not Resolved]
